FAERS Safety Report 10483014 (Version 2)
Quarter: 2014Q3

REPORT INFORMATION
  Report Type: Spontaneous
  Country: AU (occurrence: AU)
  Receive Date: 20140929
  Receipt Date: 20140929
  Transmission Date: 20150326
  Serious: Yes (Life-Threatening, Hospitalization)
  Sender: FDA-Public Use
  Company Number: AU-BRISTOL-MYERS SQUIBB COMPANY-21118922

PATIENT
  Age: 65 Year
  Sex: Female
  Weight: 101 kg

DRUGS (6)
  1. CELEBREX [Concomitant]
     Active Substance: CELECOXIB
  2. MIRTAZAPINE. [Concomitant]
     Active Substance: MIRTAZAPINE
  3. OROXINE [Concomitant]
     Active Substance: LEVOTHYROXINE SODIUM
  4. BYETTA [Suspect]
     Active Substance: EXENATIDE
     Dates: end: 20120611
  5. LIPITOR [Concomitant]
     Active Substance: ATORVASTATIN CALCIUM
  6. PARIET [Concomitant]
     Active Substance: RABEPRAZOLE SODIUM

REACTIONS (2)
  - Pancreatitis [Unknown]
  - Multi-organ failure [Unknown]

NARRATIVE: CASE EVENT DATE: 200912
